FAERS Safety Report 5981720-4 (Version None)
Quarter: 2008Q4

REPORT INFORMATION
  Report Type: 
  Country: None (occurrence: None)
  Receive Date: 20081205
  Receipt Date: 20081201
  Transmission Date: 20090506
  Serious: Yes (Hospitalization)
  Sender: FDA-Public Use
  Company Number: US-ROXANE LABORATORIES, INC.-2008-RO-00322RO

PATIENT
  Age: 29 Year
  Sex: Female

DRUGS (7)
  1. MERCAPTOPURINE [Suspect]
     Indication: CROHN'S DISEASE
     Dosage: 100MG
  2. PREDNISONE TAB [Suspect]
     Indication: CROHN'S DISEASE
     Route: 048
  3. MESALAMINE [Suspect]
     Indication: CROHN'S DISEASE
     Dosage: 4000MG
  4. CHLORDIAZEPOXIDE HCL W/ CLIDINIUM BROMIDE [Suspect]
     Indication: CROHN'S DISEASE
  5. FLUOCINONIDE [Concomitant]
     Indication: PALMAR-PLANTAR ERYTHRODYSAESTHESIA SYNDROME
  6. FLUIDS [Concomitant]
     Indication: PALMAR-PLANTAR ERYTHRODYSAESTHESIA SYNDROME
  7. MUPIROCIN [Concomitant]
     Indication: PALMAR-PLANTAR ERYTHRODYSAESTHESIA SYNDROME

REACTIONS (3)
  - DRUG INTERACTION [None]
  - DRUG TOXICITY [None]
  - PALMAR-PLANTAR ERYTHRODYSAESTHESIA SYNDROME [None]
